FAERS Safety Report 6560135-4 (Version None)
Quarter: 2010Q1

REPORT INFORMATION
  Report Type: 
  Country: None (occurrence: None)
  Receive Date: 20100129
  Receipt Date: 20050201
  Transmission Date: 20100710
  Serious: No
  Sender: FDA-Public Use
  Company Number: US-ALLERGAN-200411392

PATIENT
  Age: 61 Year
  Sex: Female
  Weight: 51.818 kg

DRUGS (10)
  1. BOTOX COSMETIC [Suspect]
     Indication: SKIN WRINKLING
     Dosage: 40UNITS, SINGLE
     Route: 030
     Dates: start: 20040314, end: 20040314
  2. BOTOX COSMETIC [Suspect]
     Dosage: 20UNITS, SINGLE
     Route: 030
     Dates: start: 20041122, end: 20041122
  3. TRIESTROGEN [Concomitant]
     Indication: HORMONE REPLACEMENT THERAPY
     Dosage: 7.5MG, Q WEEK
     Route: 065
     Dates: start: 20020101, end: 20040901
  4. TRIESTROGEN [Concomitant]
     Dosage: 7.5MG, Q WEEK
     Route: 065
     Dates: start: 20041220
  5. OMEGA [Concomitant]
     Indication: VITAMIN SUPPLEMENTATION
     Dosage: 1DF, BID
     Route: 065
     Dates: end: 20040901
  6. OMEGA [Concomitant]
     Dosage: 1DF, BID
     Route: 065
     Dates: start: 20041222
  7. FOLIC ACID [Concomitant]
     Indication: VITAMIN SUPPLEMENTATION
     Dosage: STOPPED AT THE END OF SEP2004.
     Dates: end: 20040901
  8. FOLIC ACID [Concomitant]
     Dates: start: 20041222
  9. LIPO-BC [Concomitant]
     Indication: VITAMIN SUPPLEMENTATION
     Dosage: STOPPED AT THE END OF SEP2004.
     Dates: end: 20040901
  10. LIPO-BC [Concomitant]
     Dates: start: 20041222

REACTIONS (8)
  - ABDOMINAL PAIN LOWER [None]
  - CARBOHYDRATE ANTIGEN 125 [None]
  - DECREASED APPETITE [None]
  - HYPOAESTHESIA [None]
  - INJECTION SITE PAIN [None]
  - PAIN IN EXTREMITY [None]
  - PARAESTHESIA [None]
  - WEIGHT DECREASED [None]
